FAERS Safety Report 4389306-2 (Version None)
Quarter: 2004Q3

REPORT INFORMATION
  Report Type: 
  Country: None (occurrence: None)
  Receive Date: 20040702
  Receipt Date: 20040326
  Transmission Date: 20050211
  Serious: Yes (Death)
  Sender: FDA-Public Use
  Company Number: JP-ROCHE-362974

PATIENT
  Age: 39 Year
  Sex: Male

DRUGS (7)
  1. CELLCEPT [Suspect]
     Route: 048
     Dates: start: 20000304, end: 20040129
  2. PROGRAF [Suspect]
     Route: 048
     Dates: start: 19990711, end: 20040209
  3. PREDNISOLONE [Suspect]
     Route: 048
     Dates: start: 19990713, end: 20040130
  4. NEORAL [Suspect]
     Route: 065
     Dates: start: 20040221
  5. BLOPRESS [Concomitant]
  6. NORVASC [Concomitant]
  7. KOLANTYL [Concomitant]

REACTIONS (4)
  - CYTOMEGALOVIRUS INFECTION [None]
  - ENCEPHALOPATHY [None]
  - EPSTEIN-BARR VIRUS INFECTION [None]
  - PROGRESSIVE MULTIFOCAL LEUKOENCEPHALOPATHY [None]
